FAERS Safety Report 6443581-9 (Version None)
Quarter: 2009Q4

REPORT INFORMATION
  Report Type: 
  Country: None (occurrence: None)
  Receive Date: 20091117
  Receipt Date: 20091104
  Transmission Date: 20100525
  Serious: Yes (Other)
  Sender: FDA-Public Use
  Company Number: US-SANOFI-AVENTIS-A03200904814

PATIENT
  Age: 78 Year
  Sex: Female
  Weight: 61.22 kg

DRUGS (7)
  1. CLOPIDOGREL BISULFATE [Suspect]
     Indication: STENT PLACEMENT
     Dosage: UNIT DOSE: 75 MG
     Route: 048
     Dates: start: 20081101, end: 20091104
  2. HYDROCHLOROTHIAZIDE [Concomitant]
     Dosage: UNIT DOSE: 25 MG
     Route: 048
  3. ZOCOR [Concomitant]
     Route: 065
     Dates: end: 20090901
  4. ALPRAZOLAM [Concomitant]
     Dosage: UNIT DOSE: .25 MG
     Route: 048
  5. KLOR-CON [Concomitant]
     Dosage: UNIT DOSE: 10 MG
     Route: 048
  6. INDERAL LA [Concomitant]
     Dosage: UNIT DOSE: 10 MG
     Route: 048
  7. HYDROCODONE [Concomitant]
     Indication: PAIN

REACTIONS (6)
  - ARTHRITIS [None]
  - BLOOD PRESSURE INCREASED [None]
  - CAROTID ARTERY OCCLUSION [None]
  - CONTUSION [None]
  - DIZZINESS [None]
  - NERVOUSNESS [None]
